FAERS Safety Report 25193572 (Version 1)
Quarter: 2025Q2

REPORT INFORMATION
  Report Type: Spontaneous
  Country: US (occurrence: US)
  Receive Date: 20250414
  Receipt Date: 20250414
  Transmission Date: 20250716
  Serious: Yes (Death, Other)
  Sender: ALEXION PHARMACEUTICALS
  Company Number: US-ASTRAZENECA-202504USA009902US

PATIENT
  Age: 70 Year

DRUGS (4)
  1. FARXIGA [Suspect]
     Active Substance: DAPAGLIFLOZIN PROPANEDIOL
     Route: 065
  2. RYBELSUS [Suspect]
     Active Substance: SEMAGLUTIDE
     Indication: Type 2 diabetes mellitus
     Dosage: 14 MILLIGRAM, QD
     Route: 065
  3. RYBELSUS [Suspect]
     Active Substance: SEMAGLUTIDE
     Indication: Glycosylated haemoglobin decreased
  4. RYBELSUS [Suspect]
     Active Substance: SEMAGLUTIDE
     Indication: Renal disorder

REACTIONS (8)
  - Atrial fibrillation [Fatal]
  - Abdominal pain upper [Unknown]
  - Diarrhoea [Unknown]
  - Nausea [Unknown]
  - Constipation [Unknown]
  - Insomnia [Recovering/Resolving]
  - Gastrointestinal disorder [Unknown]
  - Glycosylated haemoglobin increased [Unknown]
